FAERS Safety Report 5595553-4 (Version None)
Quarter: 2008Q1

REPORT INFORMATION
  Report Type: 
  Country: None (occurrence: None)
  Receive Date: 20080118
  Receipt Date: 20080110
  Transmission Date: 20080703
  Serious: Yes (Other)
  Sender: FDA-Public Use
  Company Number: PHBS2008BE00671

PATIENT
  Age: 23 Year
  Sex: Male

DRUGS (2)
  1. MIACALCIN [Suspect]
     Indication: COMPLEX REGIONAL PAIN SYNDROME
     Dosage: 100 U/DAY
     Route: 058
     Dates: start: 20071221, end: 20071231
  2. MIACALCIN [Suspect]
     Indication: COMPLEX REGIONAL PAIN SYNDROME
     Route: 045
     Dates: start: 20071231

REACTIONS (2)
  - NAUSEA [None]
  - SKIN EXFOLIATION [None]
